FAERS Safety Report 5887500-2 (Version None)
Quarter: 2008Q3

REPORT INFORMATION
  Report Type: 
  Country: None (occurrence: None)
  Receive Date: 20080917
  Receipt Date: 20080917
  Transmission Date: 20090109
  Serious: Yes (Other)
  Sender: FDA-Public Use
  Company Number: None

PATIENT
  Age: 6 Year
  Sex: Male
  Weight: 19.0511 kg

DRUGS (1)
  1. AMOXICILLIN [Suspect]
     Indication: LYMPHADENOPATHY
     Dosage: 1 TSP BID
     Dates: start: 20080809

REACTIONS (1)
  - RASH [None]
